FAERS Safety Report 6528875-0 (Version None)
Quarter: 2010Q1

REPORT INFORMATION
  Report Type: 
  Country: None (occurrence: None)
  Receive Date: 20100106
  Receipt Date: 20100105
  Transmission Date: 20100710
  Serious: Yes (Other)
  Sender: FDA-Public Use
  Company Number: US-RB-027093-09

PATIENT
  Age: 28 Year
  Sex: Female

DRUGS (2)
  1. SUBUTEX [Suspect]
     Indication: DRUG USE FOR UNKNOWN INDICATION
     Dosage: 2 MG NO OTHER DOSING INFORMATION IS KNOWN
     Route: 065
  2. SUBOXONE [Suspect]
     Indication: DRUG USE FOR UNKNOWN INDICATION
     Dosage: DOSING AND FREQUENCY INFORMATION IS UNKNOWN
     Route: 065

REACTIONS (8)
  - ANXIETY [None]
  - DEPRESSION [None]
  - DRUG EXPOSURE DURING PREGNANCY [None]
  - INJURY [None]
  - KIDNEY INFECTION [None]
  - PREMATURE LABOUR [None]
  - ROAD TRAFFIC ACCIDENT [None]
  - THROMBOSIS [None]
